FAERS Safety Report 25449448 (Version 1)
Quarter: 2025Q2

REPORT INFORMATION
  Report Type: Spontaneous
  Country: FR (occurrence: FR)
  Receive Date: 20250618
  Receipt Date: 20250618
  Transmission Date: 20250717
  Serious: Yes (Hospitalization)
  Sender: ACCORD
  Company Number: None

PATIENT
  Age: 72 Year
  Sex: Male

DRUGS (7)
  1. PACLITAXEL [Suspect]
     Active Substance: PACLITAXEL
     Indication: Adenosquamous cell lung cancer stage IV
     Dates: start: 20240531, end: 20240802
  2. ACAMPROSATE CALCIUM [Concomitant]
     Active Substance: ACAMPROSATE CALCIUM
     Indication: Alcohol abuse
  3. PEMBROLIZUMAB [Concomitant]
     Active Substance: PEMBROLIZUMAB
     Indication: Adenosquamous cell lung cancer stage IV
     Dates: start: 20240531
  4. CARBOPLATIN [Concomitant]
     Active Substance: CARBOPLATIN
     Indication: Adenosquamous cell lung cancer stage IV
     Dosage: AUC5 EVERY 28 DAYS
     Dates: start: 20240531, end: 20240726
  5. BECLOMETASONE, FORMOTEROL, GLYCOPYRRONIUM [Concomitant]
     Indication: Bronchitis chronic
     Dates: start: 20240726
  6. ATORVASTATIN [Concomitant]
     Active Substance: ATORVASTATIN
     Indication: Dyslipidaemia
  7. IVABRADINE HYDROCHLORIDE [Concomitant]
     Active Substance: IVABRADINE HYDROCHLORIDE
     Indication: Arteriosclerosis

REACTIONS (1)
  - Loss of proprioception [Not Recovered/Not Resolved]

NARRATIVE: CASE EVENT DATE: 20240809
